FAERS Safety Report 18784891 (Version 1)
Quarter: 2021Q1

REPORT INFORMATION
  Report Type: Other
  Country: US (occurrence: US)
  Receive Date: 20210125
  Receipt Date: 20210125
  Transmission Date: 20210419
  Serious: No
  Sender: FDA-Public Use
  Company Number: US-ROCHE-2547588

PATIENT
  Age: 60 Year
  Sex: Female

DRUGS (10)
  1. RITUXIMAB. [Suspect]
     Active Substance: RITUXIMAB
     Indication: BREAST CANCER METASTATIC
     Route: 041
  2. DIAZEPAM. [Concomitant]
     Active Substance: DIAZEPAM
  3. CLONAZEPAM. [Concomitant]
     Active Substance: CLONAZEPAM
  4. LEVETIRACETAM. [Concomitant]
     Active Substance: LEVETIRACETAM
  5. TIZANIDINE. [Concomitant]
     Active Substance: TIZANIDINE
  6. LORAZEPAM. [Concomitant]
     Active Substance: LORAZEPAM
  7. TIAGABINE [Concomitant]
     Active Substance: TIAGABINE
  8. GABAPENTIN. [Concomitant]
     Active Substance: GABAPENTIN
  9. DANTROLENE. [Concomitant]
     Active Substance: DANTROLENE SODIUM
  10. BOTULINUM TOXIN [Concomitant]
     Active Substance: BOTULINUM TOXIN NOS

REACTIONS (1)
  - Muscle spasms [Unknown]
